FAERS Safety Report 15123585 (Version 1)
Quarter: 2018Q3

REPORT INFORMATION
  Report Type: Spontaneous
  Country: US (occurrence: US)
  Receive Date: 20180710
  Receipt Date: 20180710
  Transmission Date: 20181010
  Serious: No
  Sender: FDA-Public Use
  Company Number: US-BRISTOL-MYERS SQUIBB COMPANY-BMS-2018-061872

PATIENT
  Sex: Female
  Weight: 64.41 kg

DRUGS (8)
  1. ELIQUIS [Suspect]
     Active Substance: APIXABAN
     Indication: EMBOLISM VENOUS
     Dosage: 2.5 MG, QD
     Route: 048
     Dates: start: 2017
  2. ANTIBIOTIC                         /00011701/ [Suspect]
     Active Substance: UNSPECIFIED INGREDIENT
     Indication: INFLUENZA
     Route: 065
  3. VITAMINS WITH MINERALS [Concomitant]
     Active Substance: MINERALS\VITAMINS
     Indication: PRODUCT USED FOR UNKNOWN INDICATION
     Route: 065
  4. METFORMIN [Concomitant]
     Active Substance: METFORMIN HYDROCHLORIDE
     Indication: PRODUCT USED FOR UNKNOWN INDICATION
     Route: 065
  5. AMLODIPINE [Concomitant]
     Active Substance: AMLODIPINE BESYLATE
     Indication: PRODUCT USED FOR UNKNOWN INDICATION
     Route: 065
  6. VALSARTAN. [Concomitant]
     Active Substance: VALSARTAN
     Indication: PRODUCT USED FOR UNKNOWN INDICATION
     Route: 065
  7. CARVEDILOL. [Concomitant]
     Active Substance: CARVEDILOL
     Indication: PRODUCT USED FOR UNKNOWN INDICATION
     Route: 065
  8. VITAMIN D                          /00107901/ [Concomitant]
     Active Substance: ERGOCALCIFEROL
     Indication: PRODUCT USED FOR UNKNOWN INDICATION
     Route: 065

REACTIONS (7)
  - Influenza [Unknown]
  - Hypotension [Unknown]
  - Off label use [Unknown]
  - Pruritus [Unknown]
  - Weight decreased [Unknown]
  - Abdominal pain upper [Unknown]
  - Heart rate increased [Unknown]
